FAERS Safety Report 5228002-6 (Version None)
Quarter: 2007Q1

REPORT INFORMATION
  Report Type: 
  Country: None (occurrence: None)
  Receive Date: 20061205
  Receipt Date: 20061011
  Transmission Date: 20070707
  Serious: No
  Sender: FDA-Public Use
  Company Number: PHEH2006US12816

PATIENT
  Age: 21 Year
  Sex: Male
  Weight: 86 kg

DRUGS (1)
  1. EXJADE [Suspect]
     Indication: THALASSAEMIA
     Dosage: 750 MG, QD, ORAL
     Route: 048
     Dates: start: 20060801

REACTIONS (2)
  - VIRAL INFECTION [None]
  - WHITE BLOOD CELL COUNT DECREASED [None]
